FAERS Safety Report 8078606-0 (Version None)
Quarter: 2012Q1

REPORT INFORMATION
  Report Type: 
  Country: None (occurrence: None)
  Receive Date: 20120127
  Receipt Date: 20110103
  Transmission Date: 20120608
  Serious: No
  Sender: FDA-Public Use
  Company Number: US-ABBOTT-11P-163-0694932-00

PATIENT
  Age: 45 Year
  Sex: Male
  Weight: 83.99 kg

DRUGS (6)
  1. UNKNOWN MEDICATION [Concomitant]
     Indication: BLOOD CHOLESTEROL
  2. HUMIRA [Suspect]
     Indication: PSORIASIS
     Dates: start: 20081001, end: 20100601
  3. UNKNOWN MEDICATION [Concomitant]
     Indication: GASTROOESOPHAGEAL REFLUX DISEASE
  4. HUMIRA [Suspect]
     Dates: start: 20101201
  5. UNKNOWN MEDICATION [Concomitant]
     Indication: HYPERTENSION
  6. UNKNOWN MEDICATION [Concomitant]
     Indication: DEPRESSION

REACTIONS (3)
  - POOR QUALITY DRUG ADMINISTERED [None]
  - WEIGHT DECREASED [None]
  - PSORIASIS [None]
